FAERS Safety Report 16994733 (Version 1)
Quarter: 2019Q4

REPORT INFORMATION
  Report Type: Report from Study
  Country: CA (occurrence: CA)
  Receive Date: 20191105
  Receipt Date: 20191105
  Transmission Date: 20200122
  Serious: Yes (Other)
  Sender: FDA-Public Use
  Company Number: CA-PFIZER INC-2019476149

PATIENT
  Age: 68 Year
  Sex: Female

DRUGS (7)
  1. METHOTREXATE SODIUM. [Suspect]
     Active Substance: METHOTREXATE SODIUM
  2. COSENTYX [Suspect]
     Active Substance: SECUKINUMAB
     Dosage: 300 MG, MONTHLY
     Route: 058
  3. COSENTYX [Suspect]
     Active Substance: SECUKINUMAB
     Indication: PSORIATIC ARTHROPATHY
     Dosage: 450 MG, MONTHLY
     Route: 058
  4. COSENTYX [Suspect]
     Active Substance: SECUKINUMAB
     Indication: PSORIASIS
     Dosage: 450 MG, MONTHLY
     Route: 058
  5. RITUXAN [Concomitant]
     Active Substance: RITUXIMAB
  6. STELARA [Concomitant]
     Active Substance: USTEKINUMAB
  7. COSENTYX [Suspect]
     Active Substance: SECUKINUMAB
     Dosage: 450 MG, MONTHLY
     Route: 058

REACTIONS (8)
  - Drug ineffective [Not Recovered/Not Resolved]
  - Psoriasis area severity index increased [Not Recovered/Not Resolved]
  - Skin disorder [Not Recovered/Not Resolved]
  - Inappropriate schedule of product administration [Unknown]
  - Localised infection [Not Recovered/Not Resolved]
  - Organ failure [Not Recovered/Not Resolved]
  - Skin plaque [Not Recovered/Not Resolved]
  - Urticaria [Not Recovered/Not Resolved]
